FAERS Safety Report 4478136-9 (Version None)
Quarter: 2004Q4

REPORT INFORMATION
  Report Type: 
  Country: None (occurrence: None)
  Receive Date: 20041018
  Receipt Date: 20041018
  Transmission Date: 20050328
  Serious: Yes (Life-Threatening, Hospitalization)
  Sender: FDA-Public Use
  Company Number: None

PATIENT
  Age: 74 Year
  Sex: Male
  Weight: 94.3482 kg

DRUGS (2)
  1. PRIMAXIN [Suspect]
     Indication: KLEBSIELLA INFECTION
     Dosage: IV
     Dates: start: 20041010, end: 20041014
  2. PRIMAXIN [Suspect]
     Indication: PSEUDOMONAS INFECTION
     Dosage: IV
     Dates: start: 20041010, end: 20041014

REACTIONS (9)
  - CONDITION AGGRAVATED [None]
  - CONFUSIONAL STATE [None]
  - DYSPHAGIA [None]
  - HALLUCINATION [None]
  - HYPERHIDROSIS [None]
  - MEDICATION ERROR [None]
  - PYREXIA [None]
  - TREMOR [None]
  - VOMITING [None]
